FAERS Safety Report 25753221 (Version 1)
Quarter: 2025Q3

REPORT INFORMATION
  Report Type: Spontaneous
  Country: CN (occurrence: CN)
  Receive Date: 20250903
  Receipt Date: 20250903
  Transmission Date: 20251021
  Serious: Yes (Hospitalization)
  Sender: BEIGENE
  Company Number: CN-BEIGENE-BGN-2025-014376

PATIENT
  Age: 58 Year
  Weight: 51 kg

DRUGS (6)
  1. TISLELIZUMAB [Suspect]
     Active Substance: TISLELIZUMAB
     Indication: Nasopharyngeal cancer
  2. TISLELIZUMAB [Suspect]
     Active Substance: TISLELIZUMAB
     Route: 041
  3. TISLELIZUMAB [Suspect]
     Active Substance: TISLELIZUMAB
     Route: 041
  4. TISLELIZUMAB [Suspect]
     Active Substance: TISLELIZUMAB
  5. NEDAPLATIN [Suspect]
     Active Substance: NEDAPLATIN
     Indication: Nasopharyngeal cancer
     Route: 041
  6. NEDAPLATIN [Suspect]
     Active Substance: NEDAPLATIN

REACTIONS (1)
  - Myelosuppression [Recovering/Resolving]
